FAERS Safety Report 21875247 (Version 12)
Quarter: 2023Q2

REPORT INFORMATION
  Report Type: Report from Study
  Country: US (occurrence: US)
  Receive Date: 20230117
  Receipt Date: 20230602
  Transmission Date: 20230721
  Serious: Yes (Other)
  Sender: FDA-Public Use
  Company Number: US-BEH-2023153942

PATIENT
  Age: 63 Year
  Sex: Female
  Weight: 83.447 kg

DRUGS (13)
  1. HIZENTRA [Suspect]
     Active Substance: HUMAN IMMUNOGLOBULIN G
     Indication: Primary immunodeficiency syndrome
     Dosage: 10 GRAM, QW
     Route: 058
     Dates: start: 20221228, end: 20230104
  2. HIZENTRA [Suspect]
     Active Substance: HUMAN IMMUNOGLOBULIN G
     Indication: Immunodeficiency common variable
     Dosage: UNK UNK, QW
     Route: 065
     Dates: start: 20230104
  3. HIZENTRA [Suspect]
     Active Substance: HUMAN IMMUNOGLOBULIN G
     Indication: Hypogammaglobulinaemia
     Dosage: UNK
     Route: 058
  4. HIZENTRA [Suspect]
     Active Substance: HUMAN IMMUNOGLOBULIN G
     Indication: Immunodeficiency common variable
     Dosage: UNK
     Route: 058
     Dates: start: 20230104, end: 20230104
  5. HIZENTRA [Suspect]
     Active Substance: HUMAN IMMUNOGLOBULIN G
     Dosage: UNK
     Route: 058
     Dates: start: 20230104, end: 20230104
  6. HIZENTRA [Suspect]
     Active Substance: HUMAN IMMUNOGLOBULIN G
     Dosage: 10 GRAM, QW
     Route: 058
  7. HIZENTRA [Suspect]
     Active Substance: HUMAN IMMUNOGLOBULIN G
     Dosage: UNK, QW
     Route: 058
     Dates: start: 20221228, end: 202212
  8. HIZENTRA [Suspect]
     Active Substance: HUMAN IMMUNOGLOBULIN G
     Dosage: UNK
     Route: 058
     Dates: start: 20230502
  9. HIZENTRA [Suspect]
     Active Substance: HUMAN IMMUNOGLOBULIN G
     Dosage: 10 GRAM, QW
     Route: 058
     Dates: start: 20221228
  10. TYLENOL [Concomitant]
     Active Substance: ACETAMINOPHEN
     Indication: Premedication
  11. BENADRYL [Concomitant]
     Active Substance: DIPHENHYDRAMINE HYDROCHLORIDE
     Indication: Premedication
  12. CLONAZEPAM [Concomitant]
     Active Substance: CLONAZEPAM
     Indication: Peripheral sensory neuropathy
  13. PREDNISONE [Concomitant]
     Active Substance: PREDNISONE
     Indication: Premedication
     Dosage: LOW DOSE

REACTIONS (45)
  - Oxygen saturation decreased [Recovering/Resolving]
  - Fatigue [Not Recovered/Not Resolved]
  - Malaise [Not Recovered/Not Resolved]
  - Tremor [Not Recovered/Not Resolved]
  - Rash erythematous [Not Recovered/Not Resolved]
  - Pruritus [Unknown]
  - Blister [Unknown]
  - Petechiae [Unknown]
  - Rash erythematous [Unknown]
  - Pruritus [Not Recovered/Not Resolved]
  - Blister [Not Recovered/Not Resolved]
  - Petechiae [Not Recovered/Not Resolved]
  - Oxygen saturation decreased [Recovering/Resolving]
  - Dyspnoea [Recovering/Resolving]
  - Fatigue [Unknown]
  - Malaise [Unknown]
  - Irritability [Unknown]
  - Vasculitis [Not Recovered/Not Resolved]
  - Back pain [Not Recovered/Not Resolved]
  - Pain in extremity [Not Recovered/Not Resolved]
  - Back pain [Not Recovered/Not Resolved]
  - Malaise [Unknown]
  - Rash [Not Recovered/Not Resolved]
  - Burning sensation [Not Recovered/Not Resolved]
  - Oxygen saturation decreased [Unknown]
  - Burning sensation [Not Recovered/Not Resolved]
  - Small fibre neuropathy [Unknown]
  - Inflammation [Unknown]
  - Malaise [Not Recovered/Not Resolved]
  - Fatigue [Not Recovered/Not Resolved]
  - Respiratory tract congestion [Not Recovered/Not Resolved]
  - No adverse event [Unknown]
  - Product use issue [Unknown]
  - No adverse event [Not Recovered/Not Resolved]
  - Rash [Unknown]
  - Oxygen saturation decreased [Unknown]
  - Rash [Unknown]
  - Rash [Unknown]
  - Swelling [Unknown]
  - Pyrexia [Unknown]
  - Dilated pores [Unknown]
  - Back pain [Unknown]
  - Incorrect product administration duration [Unknown]
  - Therapy interrupted [Unknown]
  - Therapy interrupted [Not Recovered/Not Resolved]

NARRATIVE: CASE EVENT DATE: 20221201
